FAERS Safety Report 14299342 (Version 2)
Quarter: 2018Q1

REPORT INFORMATION
  Report Type: Spontaneous
  Country: FI (occurrence: FI)
  Receive Date: 20171219
  Receipt Date: 20180221
  Transmission Date: 20180509
  Serious: Yes (Life-Threatening, Hospitalization, Disabling, Other)
  Sender: FDA-Public Use
  Company Number: FI-SUN PHARMACEUTICAL INDUSTRIES LTD-2017RR-157013

PATIENT
  Age: 38 Year
  Sex: Male

DRUGS (3)
  1. LEVETIRACETAM. [Suspect]
     Active Substance: LEVETIRACETAM
     Indication: FRONTAL LOBE EPILEPSY
     Dosage: UNK
     Route: 065
  2. OXCARBAZEPINE. [Suspect]
     Active Substance: OXCARBAZEPINE
     Indication: FRONTAL LOBE EPILEPSY
     Route: 065
  3. CLOBAZAM 20 MG [Concomitant]
     Indication: FRONTAL LOBE EPILEPSY
     Route: 065

REACTIONS (10)
  - Fatigue [Unknown]
  - Anxiety [Unknown]
  - Insomnia [Recovering/Resolving]
  - Nervousness [Unknown]
  - Upper airway obstruction [Unknown]
  - Irregular sleep phase [Unknown]
  - Terminal insomnia [Unknown]
  - Depressed mood [Unknown]
  - Sleep apnoea syndrome [Unknown]
  - Middle insomnia [Recovering/Resolving]
